FAERS Safety Report 7119309-6 (Version None)
Quarter: 2010Q4

REPORT INFORMATION
  Report Type: 
  Country: None (occurrence: None)
  Receive Date: 20101123
  Receipt Date: 20101117
  Transmission Date: 20110411
  Serious: Yes (Death)
  Sender: FDA-Public Use
  Company Number: US-CELGENEUS-163-21880-10112185

PATIENT
  Sex: Female

DRUGS (3)
  1. REVLIMID [Suspect]
     Indication: MULTIPLE MYELOMA
     Route: 048
     Dates: start: 20100601
  2. REVLIMID [Suspect]
     Route: 048
     Dates: start: 20100901
  3. REVLIMID [Suspect]
     Route: 048
     Dates: start: 20100901, end: 20100101

REACTIONS (1)
  - DEATH [None]
